FAERS Safety Report 8432423-8 (Version None)
Quarter: 2012Q2

REPORT INFORMATION
  Report Type: 
  Country: None (occurrence: None)
  Receive Date: 20120606
  Receipt Date: 20120522
  Transmission Date: 20120825
  Serious: Yes (Hospitalization)
  Sender: FDA-Public Use
  Company Number: GB-023539

PATIENT
  Age: 62 Year
  Sex: Male

DRUGS (1)
  1. LEUKERAN [Suspect]
     Indication: CHRONIC LYMPHOCYTIC LEUKAEMIA
     Dosage: 10 MG/M2 DAYS, 1-7 EVERY 28 DAYS), ORAL
     Route: 048
     Dates: start: 20110308

REACTIONS (2)
  - EMPYEMA [None]
  - PLEURAL EFFUSION [None]
